FAERS Safety Report 4463649-6 (Version None)
Quarter: 2004Q3

REPORT INFORMATION
  Report Type: 
  Country: None (occurrence: None)
  Receive Date: 20040929
  Receipt Date: 20040913
  Transmission Date: 20050211
  Serious: Yes (Death, Hospitalization, Other)
  Sender: FDA-Public Use
  Company Number: US_020282191

PATIENT
  Age: 55 Year
  Sex: Female

DRUGS (9)
  1. NIZATIDINE [Suspect]
     Indication: DUODENAL ULCER HAEMORRHAGE
     Dates: start: 20010910, end: 20010927
  2. LANSOPRAZOLE [Concomitant]
  3. PROPYLTHIOURACIL [Concomitant]
  4. VOGLIBOSE [Concomitant]
  5. MECOBALAMIN [Concomitant]
  6. ADENOSINE TRIPHOSPHATE, DISODIUM SALT [Concomitant]
  7. ETIZOLAM [Concomitant]
  8. AMLODIPINE BESYLATE [Concomitant]
  9. INSULIN [Concomitant]

REACTIONS (17)
  - APLASTIC ANAEMIA [None]
  - BONE MARROW DEPRESSION [None]
  - CEREBRAL INFARCTION [None]
  - DEPRESSED LEVEL OF CONSCIOUSNESS [None]
  - DISEASE PROGRESSION [None]
  - FUNGAL INFECTION [None]
  - GASTROENTERITIS [None]
  - HYPERTHERMIA [None]
  - INTESTINAL OBSTRUCTION [None]
  - MUCORMYCOSIS [None]
  - NASOPHARYNGITIS [None]
  - PANCYTOPENIA [None]
  - PNEUMONIA [None]
  - SEPTIC SHOCK [None]
  - STAPHYLOCOCCAL INFECTION [None]
  - THROMBOLYSIS [None]
  - UPPER RESPIRATORY TRACT INFECTION [None]
